FAERS Safety Report 23341595 (Version 2)
Quarter: 2023Q4

REPORT INFORMATION
  Report Type: Spontaneous
  Country: US (occurrence: US)
  Receive Date: 20231227
  Receipt Date: 20231229
  Transmission Date: 20240109
  Serious: Yes (Other)
  Sender: FDA-Public Use
  Company Number: US-002147023-NVSC2023US272410

PATIENT

DRUGS (9)
  1. KISQALI [Interacting]
     Active Substance: RIBOCICLIB
     Indication: Breast cancer
     Dosage: UNK
     Route: 065
  2. KISQALI [Interacting]
     Active Substance: RIBOCICLIB
     Indication: Breast cancer metastatic
  3. KISQALI [Interacting]
     Active Substance: RIBOCICLIB
     Indication: Metastases to bone
  4. FEMARA [Suspect]
     Active Substance: LETROZOLE
     Indication: Breast cancer
     Dosage: 2.5 MG DAILY
     Route: 065
  5. FEMARA [Suspect]
     Active Substance: LETROZOLE
     Indication: Breast cancer metastatic
  6. FEMARA [Suspect]
     Active Substance: LETROZOLE
     Indication: Metastases to bone
  7. IBRANCE [Suspect]
     Active Substance: PALBOCICLIB
     Indication: Breast cancer
     Dosage: 75 MG DAILY (21 DAYS THEN 7 DAYS OFF, Q 28 DAYS)
     Route: 065
  8. IBRANCE [Suspect]
     Active Substance: PALBOCICLIB
     Indication: Metastases to bone
     Dosage: 75 MG, QD (FOR 3 WEEKS)
     Route: 065
  9. IBRANCE [Suspect]
     Active Substance: PALBOCICLIB
     Indication: Breast cancer metastatic

REACTIONS (7)
  - Metastases to bone [Unknown]
  - Hepatic cirrhosis [Recovering/Resolving]
  - Ascites [Recovered/Resolved]
  - Blood alkaline phosphatase increased [Unknown]
  - Hepatic function abnormal [Unknown]
  - Weight increased [Unknown]
  - Drug interaction [Unknown]
